FAERS Safety Report 4530677-1 (Version None)
Quarter: 2004Q4

REPORT INFORMATION
  Report Type: 
  Country: None (occurrence: None)
  Receive Date: 20041216
  Receipt Date: 20040622
  Transmission Date: 20050328
  Serious: Yes (Hospitalization, Other)
  Sender: FDA-Public Use
  Company Number: 2004030413

PATIENT
  Age: 19 Year
  Sex: Male
  Weight: 50 kg

DRUGS (13)
  1. ZIPRASIDONE (CAPS) (ZIPRASIDONE) [Suspect]
     Indication: SCHIZOPHRENIA
     Dosage: SEE IMAGE
     Route: 048
     Dates: start: 20040416, end: 20040419
  2. ZIPRASIDONE (CAPS) (ZIPRASIDONE) [Suspect]
     Indication: SCHIZOPHRENIA
     Dosage: SEE IMAGE
     Route: 048
     Dates: start: 20040419, end: 20040422
  3. ZIPRASIDONE (CAPS) (ZIPRASIDONE) [Suspect]
     Indication: SCHIZOPHRENIA
     Dosage: SEE IMAGE
     Route: 048
     Dates: start: 20040420
  4. ZIPRASIDONE (CAPS) (ZIPRASIDONE) [Suspect]
     Indication: SCHIZOPHRENIA
     Dosage: SEE IMAGE
     Route: 048
     Dates: start: 20040421
  5. ZIPRASIDONE (CAPS) (ZIPRASIDONE) [Suspect]
     Indication: SCHIZOPHRENIA
     Dosage: SEE IMAGE
     Route: 048
     Dates: start: 20040422
  6. HALOPERIDOL [Concomitant]
  7. CLONAZEPAM [Concomitant]
  8. BIPERIDEN 9BIPERIDEN) [Concomitant]
  9. LEVOMEPROMAZINE (LEVOMEPROMAZINE) [Concomitant]
  10. IMIPRAMINE [Concomitant]
  11. LORAZEPAM [Concomitant]
  12. ZIPRASIDONE (ZIPRASIDONE0 [Concomitant]
  13. FLURAZEPAM [Concomitant]

REACTIONS (5)
  - BLOOD CREATINE PHOSPHOKINASE INCREASED [None]
  - COMMUNICATION DISORDER [None]
  - HOSTILITY [None]
  - MOVEMENT DISORDER [None]
  - NEUROLEPTIC MALIGNANT SYNDROME [None]
